FAERS Safety Report 4737353-0 (Version None)
Quarter: 2005Q3

REPORT INFORMATION
  Report Type: 
  Country: None (occurrence: None)
  Receive Date: 20050809
  Receipt Date: 20050805
  Transmission Date: 20060218
  Serious: Yes (Life-Threatening, Hospitalization)
  Sender: FDA-Public Use
  Company Number: US-BOEHRINGER INGELHEIM PHARMACEUTICALS, INC.-2005-BP-13388BP

PATIENT
  Sex: Male
  Weight: 67.1 kg

DRUGS (1)
  1. TIPRANAVIR / RITONAVIR CAPSULES [Suspect]
     Indication: HIV INFECTION
     Dosage: TPV/R 1000/400 MG
     Route: 048
     Dates: start: 20031205, end: 20050620

REACTIONS (4)
  - ANAEMIA [None]
  - ANISOCYTOSIS [None]
  - RED BLOOD CELL ABNORMALITY [None]
  - WHITE BLOOD CELL COUNT DECREASED [None]
